FAERS Safety Report 18769878 (Version 3)
Quarter: 2021Q1

REPORT INFORMATION
  Report Type: Spontaneous
  Country: DE (occurrence: DE)
  Receive Date: 20210121
  Receipt Date: 20210219
  Transmission Date: 20210419
  Serious: Yes (Other)
  Sender: FDA-Public Use
  Company Number: DE-PFIZER INC-2020499435

PATIENT
  Age: 83 Year
  Sex: Female
  Weight: 74 kg

DRUGS (15)
  1. PANTOPRAZOL ACIS [Concomitant]
     Indication: HYPERCHLORHYDRIA
     Dosage: 20 MG, 1X/DAY
     Dates: start: 199012
  2. NEUPRO [Suspect]
     Active Substance: ROTIGOTINE
     Indication: PARKINSON^S DISEASE
     Dosage: 6 MG, 1X/DAY
     Route: 062
     Dates: start: 2019
  3. PANTOPRAZOL ACIS [Concomitant]
     Indication: CHRONIC GASTRITIS
  4. KALYMIN N [Concomitant]
     Active Substance: PYRIDOSTIGMINE BROMIDE
     Dosage: 2.5 DF, DAILY
     Dates: start: 20180814
  5. PREGABALIN. [Suspect]
     Active Substance: PREGABALIN
     Indication: PAIN
     Dosage: 50 MG, 1X/DAY
     Dates: start: 201612
  6. LERCANIDIPIN PUREN [Concomitant]
     Indication: HYPERTENSION
     Dosage: 10 MG, 1X/DAY
     Dates: start: 201012
  7. BISOPROLOL [Concomitant]
     Active Substance: BISOPROLOL
     Indication: TACHYCARDIA
     Dosage: UNK
     Dates: start: 20180814, end: 2020
  8. XADAGO [Suspect]
     Active Substance: SAFINAMIDE MESYLATE
     Dosage: 100 MG, 1X/DAY
     Dates: start: 201412
  9. LEVOCOMP [Concomitant]
     Active Substance: CARBIDOPA\LEVODOPA
     Indication: PARKINSON^S DISEASE
     Dosage: UNK
  10. KALYMIN N [Concomitant]
     Active Substance: PYRIDOSTIGMINE BROMIDE
     Indication: MYASTHENIA GRAVIS
     Dosage: 0.5 DF, 2X/DAY
     Dates: start: 20180814
  11. L?THYROXIN [LEVOTHYROXINE] [Concomitant]
     Active Substance: LEVOTHYROXINE SODIUM
     Indication: THYROID DISORDER
     Dosage: 50 UG, OD
     Dates: start: 20180814
  12. KALYMIN 60 N [Concomitant]
     Active Substance: PYRIDOSTIGMINE BROMIDE
     Indication: MYASTHENIA GRAVIS
     Dosage: 2.5 DF, DAILY
     Dates: start: 20180814
  13. XADAGO [Suspect]
     Active Substance: SAFINAMIDE MESYLATE
     Indication: PARKINSON^S DISEASE
     Dosage: 50 MG, 1X/DAY
     Dates: start: 2014, end: 2014
  14. BISOPROLOL [Concomitant]
     Active Substance: BISOPROLOL
     Dosage: 2.5 MG SINCE 6 MONTHS
     Dates: start: 2020
  15. PANTOPRAZOL ACIS [Concomitant]
     Indication: OESOPHAGITIS

REACTIONS (2)
  - Narcolepsy [Not Recovered/Not Resolved]
  - Fatigue [Not Recovered/Not Resolved]

NARRATIVE: CASE EVENT DATE: 202008
